FAERS Safety Report 17642225 (Version 1)
Quarter: 2020Q2

REPORT INFORMATION
  Report Type: Spontaneous
  Country: US (occurrence: US)
  Receive Date: 20200408
  Receipt Date: 20200408
  Transmission Date: 20200713
  Serious: No
  Sender: FDA-Public Use
  Company Number: US-ALLERGAN-1916285US

PATIENT
  Sex: Female

DRUGS (1)
  1. LILETTA [Suspect]
     Active Substance: LEVONORGESTREL
     Indication: PRODUCT USED FOR UNKNOWN INDICATION
     Dosage: 52 MG, SINGLE
     Route: 015
     Dates: start: 20190124, end: 20190522

REACTIONS (9)
  - Mental disorder [Unknown]
  - Memory impairment [Unknown]
  - Malaise [Unknown]
  - Mood swings [Unknown]
  - Nausea [Unknown]
  - Agitation [Unknown]
  - Night sweats [Unknown]
  - Dizziness [Unknown]
  - Headache [Unknown]
